FAERS Safety Report 9103133 (Version 3)
Quarter: 2014Q2

REPORT INFORMATION
  Report Type: Spontaneous
  Country: DK (occurrence: DK)
  Receive Date: 20130125
  Receipt Date: 20140509
  Transmission Date: 20141212
  Serious: Yes (Hospitalization, Other)
  Sender: FDA-Public Use
  Company Number: 2013SP000887

PATIENT
  Age: 75 Year
  Sex: Female
  Weight: 65 kg

DRUGS (23)
  1. FLUOROURACIL [Suspect]
     Indication: BREAST CANCER
     Route: 042
     Dates: start: 20121114, end: 20121205
  2. FLUOROURACIL [Suspect]
     Indication: BREAST CANCER
     Route: 042
     Dates: start: 20121205
  3. FLUOROURACIL [Suspect]
     Indication: BREAST CANCER
  4. EPIRUBICIN [Suspect]
     Indication: BREAST CANCER
     Route: 042
     Dates: start: 20121114, end: 20121205
  5. EPIRUBICIN [Suspect]
     Indication: BREAST CANCER
     Route: 042
     Dates: start: 20121205
  6. EPIRUBICIN [Suspect]
     Indication: BREAST CANCER
  7. CYCLOPHOSPHAMIDE [Suspect]
     Indication: BREAST CANCER
     Route: 042
     Dates: start: 20121114, end: 20121205
  8. CYCLOPHOSPHAMIDE [Suspect]
     Indication: BREAST CANCER
     Route: 042
     Dates: start: 20121205
  9. CYCLOPHOSPHAMIDE [Suspect]
     Indication: BREAST CANCER
  10. PEGFILGRASTIM [Suspect]
     Indication: PRODUCT USED FOR UNKNOWN INDICATION
  11. PREDNISOLONE [Concomitant]
     Indication: PRODUCT USED FOR UNKNOWN INDICATION
     Dates: start: 20121114
  12. ONDANSETRON [Concomitant]
     Indication: PRODUCT USED FOR UNKNOWN INDICATION
     Dates: start: 20121114
  13. APREPITANT [Concomitant]
     Indication: PRODUCT USED FOR UNKNOWN INDICATION
     Dates: start: 20121114
  14. EMPERAL [Concomitant]
     Indication: PRODUCT USED FOR UNKNOWN INDICATION
     Dates: start: 20121114
  15. IRON [Concomitant]
     Indication: PRODUCT USED FOR UNKNOWN INDICATION
  16. ASCORBIC ACID [Concomitant]
  17. ERGOCALCIFEROL [Concomitant]
  18. FOLIC ACID [Concomitant]
  19. NICOTINAMIDE [Concomitant]
  20. PANTHENOL [Concomitant]
  21. RETINOL [Concomitant]
  22. RIBOFLAVIN [Concomitant]
  23. THIAMINE HYDROCHLORIDE [Concomitant]

REACTIONS (3)
  - Febrile neutropenia [Recovered/Resolved]
  - Pyrexia [Recovered/Resolved]
  - Fatigue [Recovered/Resolved]
